FAERS Safety Report 5968174-9 (Version None)
Quarter: 2008Q4

REPORT INFORMATION
  Report Type: 
  Country: None (occurrence: None)
  Receive Date: 20081126
  Receipt Date: 20081122
  Transmission Date: 20090506
  Serious: Yes (Life-Threatening)
  Sender: FDA-Public Use
  Company Number: JP-EISAI MEDICAL RESEARCH-E2020-03740-SPO-JP

PATIENT
  Age: 87 Year
  Sex: Female

DRUGS (3)
  1. ARICEPT [Suspect]
     Indication: DEMENTIA
     Dosage: UNKNOWN
     Route: 048
  2. NORVASC [Concomitant]
     Route: 048
  3. FLUITRAN [Concomitant]
     Route: 048

REACTIONS (1)
  - CARDIO-RESPIRATORY ARREST [None]
